FAERS Safety Report 26130342 (Version 1)
Quarter: 2025Q4

REPORT INFORMATION
  Report Type: Spontaneous
  Country: US (occurrence: US)
  Receive Date: 20251208
  Receipt Date: 20251208
  Transmission Date: 20260117
  Serious: Yes (Hospitalization)
  Sender: MYLAN
  Company Number: US-MYLANLABS-2025M1103497

PATIENT
  Age: 18 Year
  Sex: Female

DRUGS (18)
  1. PROPRANOLOL [Suspect]
     Active Substance: PROPRANOLOL HYDROCHLORIDE
     Indication: Graves^ disease
     Dosage: 20 MILLIGRAM, TID
  2. PROPRANOLOL [Suspect]
     Active Substance: PROPRANOLOL HYDROCHLORIDE
     Dosage: 20 MILLIGRAM, TID
     Route: 065
  3. PROPRANOLOL [Suspect]
     Active Substance: PROPRANOLOL HYDROCHLORIDE
     Dosage: 20 MILLIGRAM, TID
     Route: 065
  4. PROPRANOLOL [Suspect]
     Active Substance: PROPRANOLOL HYDROCHLORIDE
     Dosage: 20 MILLIGRAM, TID
  5. POTASSIUM CHLORIDE [Concomitant]
     Active Substance: POTASSIUM CHLORIDE
     Indication: Hypokalaemia
     Dosage: 140 MILLIEQUIVALENT, QD, TOTAL DAILY
  6. POTASSIUM CHLORIDE [Concomitant]
     Active Substance: POTASSIUM CHLORIDE
     Dosage: 140 MILLIEQUIVALENT, QD, TOTAL DAILY
     Route: 065
  7. POTASSIUM CHLORIDE [Concomitant]
     Active Substance: POTASSIUM CHLORIDE
     Dosage: 140 MILLIEQUIVALENT, QD, TOTAL DAILY
     Route: 065
  8. POTASSIUM CHLORIDE [Concomitant]
     Active Substance: POTASSIUM CHLORIDE
     Dosage: 140 MILLIEQUIVALENT, QD, TOTAL DAILY
  9. MAGNESIUM OXIDE [Concomitant]
     Active Substance: MAGNESIUM OXIDE
     Indication: Hypomagnesaemia
     Dosage: 2800 MILLIGRAM, QD, TOTAL DAILY
  10. MAGNESIUM OXIDE [Concomitant]
     Active Substance: MAGNESIUM OXIDE
     Dosage: 2800 MILLIGRAM, QD, TOTAL DAILY
     Route: 065
  11. MAGNESIUM OXIDE [Concomitant]
     Active Substance: MAGNESIUM OXIDE
     Dosage: 2800 MILLIGRAM, QD, TOTAL DAILY
     Route: 065
  12. MAGNESIUM OXIDE [Concomitant]
     Active Substance: MAGNESIUM OXIDE
     Dosage: 2800 MILLIGRAM, QD, TOTAL DAILY
  13. METHIMAZOLE [Concomitant]
     Active Substance: METHIMAZOLE
     Indication: Graves^ disease
     Dosage: 15 MILLIGRAM, QD
  14. METHIMAZOLE [Concomitant]
     Active Substance: METHIMAZOLE
     Dosage: 15 MILLIGRAM, QD
  15. METHIMAZOLE [Concomitant]
     Active Substance: METHIMAZOLE
     Dosage: 15 MILLIGRAM, QD
     Route: 065
  16. METHIMAZOLE [Concomitant]
     Active Substance: METHIMAZOLE
     Dosage: 15 MILLIGRAM, QD
     Route: 065
  17. METHIMAZOLE [Concomitant]
     Active Substance: METHIMAZOLE
     Dosage: UNK,  INCREASED DOSE
  18. METHIMAZOLE [Concomitant]
     Active Substance: METHIMAZOLE
     Dosage: UNK,  INCREASED DOSE

REACTIONS (2)
  - Drug ineffective for unapproved indication [Unknown]
  - Product use in unapproved indication [Unknown]
